FAERS Safety Report 5731156-6 (Version None)
Quarter: 2008Q2

REPORT INFORMATION
  Report Type: 
  Country: None (occurrence: None)
  Receive Date: 20080507
  Receipt Date: 20080502
  Transmission Date: 20081010
  Serious: Yes (Death)
  Sender: FDA-Public Use
  Company Number: BE-BOEHRINGER INGELHEIM GMBH, GERMANY-2008-DE-00607GD

PATIENT
  Age: 64 Year
  Sex: Male

DRUGS (8)
  1. TAMOXIFEN CITRATE [Suspect]
     Indication: GYNAECOMASTIA
  2. TENECTEPLASE [Suspect]
     Indication: ACUTE MYOCARDIAL INFARCTION
  3. TENECTEPLASE [Suspect]
     Indication: MYOCARDIAL INFARCTION
  4. ASPIRIN [Suspect]
  5. HEPARIN [Suspect]
     Indication: ANTICOAGULANT THERAPY
  6. ABCIXIMAB [Suspect]
     Indication: ANTICOAGULANT THERAPY
  7. CLOPIDOGREL [Suspect]
     Indication: ANTICOAGULANT THERAPY
     Dosage: A LOADING DOSE
  8. BISOPROLOL FUMARATE [Concomitant]

REACTIONS (5)
  - ACUTE MYOCARDIAL INFARCTION [None]
  - BRAIN INJURY [None]
  - CORONARY ARTERY EMBOLISM [None]
  - DRUG INEFFECTIVE [None]
  - HAEMORRHAGE INTRACRANIAL [None]
